FAERS Safety Report 9467448 (Version 1)
Quarter: 2013Q3

REPORT INFORMATION
  Report Type: Report from Study
  Country: IN (occurrence: IN)
  Receive Date: 20130821
  Receipt Date: 20130821
  Transmission Date: 20140515
  Serious: Yes (Hospitalization)
  Sender: FDA-Public Use
  Company Number: PHHY2013IN089989

PATIENT
  Age: 76 Year
  Sex: Female

DRUGS (1)
  1. ACLASTA [Suspect]
     Indication: OSTEOPOROSIS
     Dosage: 5 MG/100ML PER YEAR
     Route: 042
     Dates: start: 20120831

REACTIONS (1)
  - Asthma [Not Recovered/Not Resolved]
